FAERS Safety Report 5664844-0 (Version None)
Quarter: 2008Q1

REPORT INFORMATION
  Report Type: 
  Country: None (occurrence: None)
  Receive Date: 20080314
  Receipt Date: 20080303
  Transmission Date: 20080703
  Serious: Yes (Death, Hospitalization)
  Sender: FDA-Public Use
  Company Number: US-PFIZER INC-2005146242

PATIENT
  Sex: Male
  Weight: 129.3 kg

DRUGS (12)
  1. SUTENT [Suspect]
     Indication: RENAL CELL CARCINOMA
     Route: 048
     Dates: start: 20051011, end: 20051023
  2. ACTOS [Concomitant]
     Route: 048
  3. NOVOLOG [Concomitant]
     Route: 058
  4. NORVASC [Concomitant]
     Route: 048
  5. LASIX [Concomitant]
     Route: 048
  6. PROTONIX [Concomitant]
     Route: 048
  7. LISINOPRIL [Concomitant]
     Route: 048
  8. VYTORIN [Concomitant]
     Route: 048
  9. LANTUS [Concomitant]
     Route: 058
  10. INDOCIN [Concomitant]
     Route: 048
  11. PERCOCET [Concomitant]
     Route: 048
  12. FLEXERIL [Concomitant]
     Route: 048

REACTIONS (5)
  - ASTHENIA [None]
  - DISEASE PROGRESSION [None]
  - MUCOSAL INFLAMMATION [None]
  - RENAL CELL CARCINOMA [None]
  - WOUND COMPLICATION [None]
